FAERS Safety Report 5160139-2 (Version None)
Quarter: 2006Q4

REPORT INFORMATION
  Report Type: 
  Country: None (occurrence: None)
  Receive Date: 20061129
  Receipt Date: 20061120
  Transmission Date: 20070319
  Serious: Yes (Hospitalization)
  Sender: FDA-Public Use
  Company Number: FR-BRISTOL-MYERS SQUIBB COMPANY-13586136

PATIENT
  Age: 42 Year
  Sex: Female
  Weight: 45 kg

DRUGS (3)
  1. VIDEX [Suspect]
     Route: 048
     Dates: start: 20000523, end: 20000606
  2. STAVUDINE [Suspect]
     Route: 048
     Dates: start: 20000523, end: 20000606
  3. NELFINAVIR [Suspect]
     Route: 048
     Dates: start: 20000523, end: 20000605

REACTIONS (5)
  - ABDOMINAL PAIN [None]
  - ASTHENIA [None]
  - BLOOD CREATINE PHOSPHOKINASE INCREASED [None]
  - BODY TEMPERATURE INCREASED [None]
  - MYALGIA [None]
